FAERS Safety Report 9360915 (Version 1)
Quarter: 2013Q2

REPORT INFORMATION
  Report Type: Spontaneous
  Country: US (occurrence: None)
  Receive Date: 20130620
  Receipt Date: 20130620
  Transmission Date: 20140414
  Serious: Yes (Hospitalization)
  Sender: FDA-Public Use
  Company Number: None

PATIENT
  Age: 79 Year
  Sex: Male
  Weight: 105.7 kg

DRUGS (2)
  1. MORPHINE [Suspect]
     Indication: PAIN
     Dosage: 15 MG BID PO
     Route: 048
     Dates: start: 20130523
  2. OXYCODONE [Suspect]
     Indication: PAIN
     Dosage: 5 MG QID PO
     Route: 048
     Dates: start: 20130530

REACTIONS (2)
  - Confusional state [None]
  - Hallucination [None]
